FAERS Safety Report 6751085-9 (Version None)
Quarter: 2010Q2

REPORT INFORMATION
  Report Type: 
  Country: None (occurrence: None)
  Receive Date: 20100602
  Receipt Date: 20100525
  Transmission Date: 20101027
  Serious: Yes (Other)
  Sender: FDA-Public Use
  Company Number: US-JNJFOC-20100509908

PATIENT
  Sex: Male
  Weight: 150.14 kg

DRUGS (8)
  1. RISPERDAL CONSTA [Suspect]
     Indication: SCHIZOPHRENIA
     Route: 030
  2. RISPERDAL CONSTA [Suspect]
     Route: 030
  3. RISPERDAL [Suspect]
     Indication: SCHIZOPHRENIA
     Route: 048
  4. CLONAZEPAM [Concomitant]
     Indication: ANXIETY
     Route: 065
  5. METFORMIN HCL [Concomitant]
     Indication: BLOOD GLUCOSE INCREASED
     Route: 065
  6. SEROQUEL [Concomitant]
     Route: 065
  7. PAXIL [Concomitant]
     Route: 065
  8. DEPAKOTE [Concomitant]
     Route: 065

REACTIONS (3)
  - BLOOD GLUCOSE INCREASED [None]
  - PERSONALITY DISORDER [None]
  - WEIGHT DECREASED [None]
